FAERS Safety Report 22007095 (Version 8)
Quarter: 2024Q1

REPORT INFORMATION
  Report Type: Report from Study
  Country: US (occurrence: US)
  Receive Date: 20230217
  Receipt Date: 20240312
  Transmission Date: 20240409
  Serious: Yes (Hospitalization, Other)
  Sender: FDA-Public Use
  Company Number: US-002147023-NVSC2023US036762

PATIENT
  Sex: Female

DRUGS (1)
  1. KESIMPTA [Suspect]
     Active Substance: OFATUMUMAB
     Indication: Multiple sclerosis
     Dosage: UNK
     Route: 065

REACTIONS (9)
  - Urinary tract infection [Unknown]
  - Back pain [Unknown]
  - Kidney infection [Unknown]
  - Multiple sclerosis [Unknown]
  - Pain [Unknown]
  - Illness [Unknown]
  - Hypoaesthesia [Unknown]
  - Pyrexia [Unknown]
  - Dizziness [Unknown]
